FAERS Safety Report 7789863-X (Version None)
Quarter: 2011Q3

REPORT INFORMATION
  Report Type: 
  Country: None (occurrence: None)
  Receive Date: 20110930
  Receipt Date: 20100831
  Transmission Date: 20111222
  Serious: No
  Sender: FDA-Public Use
  Company Number: US-ASTRAZENECA-2010SE01198

PATIENT
  Sex: Female

DRUGS (1)
  1. ARIMIDEX [Suspect]
     Route: 048
     Dates: start: 20030101, end: 20100101

REACTIONS (6)
  - DRUG DOSE OMISSION [None]
  - OCULAR HYPERAEMIA [None]
  - PRURITUS [None]
  - RASH [None]
  - MYALGIA [None]
  - FATIGUE [None]
